FAERS Safety Report 5152189-7 (Version None)
Quarter: 2006Q4

REPORT INFORMATION
  Report Type: 
  Country: None (occurrence: None)
  Receive Date: 20061116
  Receipt Date: 20061110
  Transmission Date: 20070319
  Serious: Yes (Hospitalization)
  Sender: FDA-Public Use
  Company Number: JP-GLAXOSMITHKLINE-B0446594A

PATIENT
  Age: 32 Year
  Sex: Male

DRUGS (10)
  1. EPZICOM [Suspect]
     Indication: HIV INFECTION
     Route: 048
     Dates: start: 20050614
  2. NORVIR [Suspect]
     Indication: HIV INFECTION
     Dosage: 100MG PER DAY
     Route: 048
     Dates: start: 20040528
  3. REYATAZ [Suspect]
     Indication: HIV INFECTION
     Dosage: 300MG PER DAY
     Route: 048
     Dates: start: 20040528
  4. EPIVIR [Concomitant]
     Indication: HIV INFECTION
     Dosage: 300MG PER DAY
     Route: 048
     Dates: start: 20050420, end: 20050613
  5. ZIAGEN [Concomitant]
     Indication: HIV INFECTION
     Dosage: 300MG TWICE PER DAY
     Route: 048
     Dates: start: 20050401, end: 20050613
  6. VIREAD [Concomitant]
     Indication: HIV INFECTION
     Dosage: 300MG PER DAY
     Route: 048
     Dates: start: 20050401, end: 20050419
  7. CLARITHROMYCIN [Concomitant]
     Indication: OPPORTUNISTIC INFECTION PROPHYLAXIS
     Dosage: 200MG PER DAY
     Route: 048
     Dates: start: 20051014
  8. HIRNAMIN [Concomitant]
     Dosage: .02G PER DAY
     Dates: start: 20050720
  9. SERENACE [Concomitant]
     Dates: start: 20050720
  10. AKINETON [Concomitant]
     Dosage: 1MG TWICE PER DAY
     Dates: start: 20050720

REACTIONS (2)
  - CONDITION AGGRAVATED [None]
  - RENAL IMPAIRMENT [None]
